FAERS Safety Report 4559164-1 (Version None)
Quarter: 2005Q1

REPORT INFORMATION
  Report Type: 
  Country: None (occurrence: None)
  Receive Date: 20050120
  Receipt Date: 20050120
  Transmission Date: 20050727
  Serious: Yes (Other)
  Sender: FDA-Public Use
  Company Number: None

PATIENT
  Age: 52 Year
  Sex: Male
  Weight: 90.2658 kg

DRUGS (1)
  1. CEFAZOLIN [Suspect]
     Dosage: PRE-OP

REACTIONS (3)
  - LACRIMATION INCREASED [None]
  - RASH PRURITIC [None]
  - URTICARIA [None]
